FAERS Safety Report 11438208 (Version 4)
Quarter: 2016Q1

REPORT INFORMATION
  Report Type: Spontaneous
  Country: JP (occurrence: JP)
  Receive Date: 20150901
  Receipt Date: 20160209
  Transmission Date: 20160525
  Serious: Yes (Death, Life-Threatening)
  Sender: FDA-Public Use
  Company Number: JP-ACTELION-A-CH2015-123277

PATIENT
  Age: 6 Month
  Sex: Female

DRUGS (22)
  1. EPOPROSTENOL ACT [Suspect]
     Active Substance: EPOPROSTENOL
     Indication: PULMONARY ARTERIAL HYPERTENSION
     Dosage: 2 NG/KG, PER MIN
     Route: 042
     Dates: start: 20150303, end: 20150402
  2. NITRIC OXIDE. [Concomitant]
     Active Substance: NITRIC OXIDE
  3. SILDENAFIL. [Concomitant]
     Active Substance: SILDENAFIL
  4. BUMETANIDE. [Concomitant]
     Active Substance: BUMETANIDE
  5. EPOPROSTENOL ACT [Suspect]
     Active Substance: EPOPROSTENOL
     Dosage: 12 NG/KG, PER MIN
     Route: 042
     Dates: start: 20150803, end: 20150805
  6. DEXMEDETOMIDINE. [Concomitant]
     Active Substance: DEXMEDETOMIDINE
  7. DOPAMIN [Concomitant]
     Active Substance: DOPAMINE HYDROCHLORIDE
  8. TRICLOFOS SODIUM [Concomitant]
     Active Substance: TRICLOFOS SODIUM
  9. SERUM ALBUMIN HUMAN [Concomitant]
  10. EPOPROSTENOL ACT [Suspect]
     Active Substance: EPOPROSTENOL
     Dosage: 4 NG/KG, PER MIN
     Route: 042
     Dates: start: 20150426, end: 20150502
  11. EPOPROSTENOL ACT [Suspect]
     Active Substance: EPOPROSTENOL
     Dosage: 3.5 NG/KG, PER MIN
     Route: 042
     Dates: start: 20150503, end: 20150602
  12. SIVELESTAT SODIUM [Concomitant]
     Active Substance: SIVELESTAT SODIUM
  13. EPOPROSTENOL ACT [Suspect]
     Active Substance: EPOPROSTENOL
     Dosage: 5 NG/KG, PER MIN
     Route: 042
     Dates: start: 20150703, end: 20150731
  14. EPOPROSTENOL ACT [Suspect]
     Active Substance: EPOPROSTENOL
     Dosage: 10 NG/KG, PER MIN
     Route: 042
     Dates: start: 20150801, end: 20150802
  15. OLPRINONE HYDROCHLORIDE [Concomitant]
     Active Substance: OLPRINONE HYDROCHLORIDE
  16. FENTANYL. [Concomitant]
     Active Substance: FENTANYL
  17. SODIUM BICARB.PED [Concomitant]
  18. DIAZEPAM. [Concomitant]
     Active Substance: DIAZEPAM
  19. ROCURONIUM [Concomitant]
     Active Substance: ROCURONIUM BROMIDE
  20. EPOPROSTENOL ACT [Suspect]
     Active Substance: EPOPROSTENOL
     Dosage: 4.5 NG/KG, PER MIN
     Route: 042
     Dates: start: 20150603, end: 20150702
  21. TRACLEER [Suspect]
     Active Substance: BOSENTAN
     Indication: PULMONARY ARTERIAL HYPERTENSION
     Route: 048
  22. HYDROCORTISONE SODIUM [Concomitant]

REACTIONS (8)
  - Condition aggravated [Fatal]
  - Ascites [Not Recovered/Not Resolved]
  - Pneumothorax [Not Recovered/Not Resolved]
  - Endotracheal intubation [Unknown]
  - Respiratory failure [Fatal]
  - Infection [Not Recovered/Not Resolved]
  - Lung disorder [Fatal]
  - Circulatory collapse [Fatal]

NARRATIVE: CASE EVENT DATE: 20150307
